FAERS Safety Report 18806146 (Version 1)
Quarter: 2021Q1

REPORT INFORMATION
  Report Type: Spontaneous
  Country: CN (occurrence: CN)
  Receive Date: 20210128
  Receipt Date: 20210128
  Transmission Date: 20210419
  Serious: Yes (Life-Threatening, Hospitalization)
  Sender: FDA-Public Use
  Company Number: CN-ELI_LILLY_AND_COMPANY-CN202101011868

PATIENT
  Sex: Female

DRUGS (7)
  1. HUMALOG MIX50/50 [Suspect]
     Active Substance: INSULIN LISPRO
     Indication: DIABETES MELLITUS
     Dosage: UNK UNK, UNKNOWN
     Route: 058
     Dates: start: 201811, end: 201905
  2. LANTUS [Concomitant]
     Active Substance: INSULIN GLARGINE
     Indication: PRODUCT USED FOR UNKNOWN INDICATION
  3. HUMALOG [Suspect]
     Active Substance: INSULIN LISPRO
     Dosage: 5 U, DAILY EVENING
     Route: 058
     Dates: start: 201805
  4. HUMALOG [Suspect]
     Active Substance: INSULIN LISPRO
     Dosage: 4 U, DAILY IN EVENING
     Route: 058
  5. HUMALOG [Suspect]
     Active Substance: INSULIN LISPRO
     Indication: DIABETES MELLITUS
     Dosage: 8 U, EACH MORNING
     Route: 058
     Dates: start: 201805
  6. HUMALOG MIX75/25 [Suspect]
     Active Substance: INSULIN LISPRO
     Indication: DIABETES MELLITUS
     Dosage: UNK UNK, UNKNOWN
     Route: 058
     Dates: start: 201905
  7. HUMALOG [Suspect]
     Active Substance: INSULIN LISPRO
     Dosage: 7 U, DAILY IN MIDDLE
     Route: 058
     Dates: start: 201805

REACTIONS (6)
  - Visual impairment [Unknown]
  - Wrong product administered [Unknown]
  - Hypoglycaemia [Unknown]
  - Chills [Unknown]
  - Critical illness [Unknown]
  - Product dose omission issue [Unknown]
